FAERS Safety Report 6936943-4 (Version None)
Quarter: 2010Q3

REPORT INFORMATION
  Report Type: 
  Country: None (occurrence: None)
  Receive Date: 20100823
  Receipt Date: 20100810
  Transmission Date: 20110219
  Serious: Yes (Death, Hospitalization, Other)
  Sender: FDA-Public Use
  Company Number: GB-BAYER-201029364GPV

PATIENT
  Age: 34 Year
  Sex: Female

DRUGS (4)
  1. NEXAVAR [Suspect]
     Indication: THYROID CANCER
     Route: 048
     Dates: start: 20100505, end: 20100517
  2. LEVOTHYROXINE SODIUM [Concomitant]
     Route: 048
  3. HYDROCORTISONE [Concomitant]
  4. CODEINE PHOSPHATE [Concomitant]

REACTIONS (3)
  - BLISTER [None]
  - MUCOSAL INFLAMMATION [None]
  - THYROID CANCER [None]
